FAERS Safety Report 5260822-4 (Version None)
Quarter: 2007Q1

REPORT INFORMATION
  Report Type: 
  Country: None (occurrence: None)
  Receive Date: 20070309
  Receipt Date: 20070301
  Transmission Date: 20070707
  Serious: Yes (Other)
  Sender: FDA-Public Use
  Company Number: US-JNJFOC-20070202021

PATIENT
  Sex: Female
  Weight: 114.76 kg

DRUGS (8)
  1. RAZADYNE [Suspect]
     Indication: DRUG USE FOR UNKNOWN INDICATION
     Route: 048
  2. ROZEREM [Suspect]
     Indication: INSOMNIA
  3. TOPAMAX [Concomitant]
     Indication: MIGRAINE
  4. TOPAMAX [Concomitant]
     Indication: WEIGHT DECREASED
  5. NYASPAN [Concomitant]
     Indication: BLOOD CHOLESTEROL INCREASED
  6. SYNTHROID [Concomitant]
     Indication: THYROID DISORDER
  7. YASMIN [Concomitant]
     Indication: CONTRACEPTION
  8. SINGULAIR [Concomitant]
     Indication: MULTIPLE ALLERGIES

REACTIONS (5)
  - DRUG DISPENSING ERROR [None]
  - HEADACHE [None]
  - INCONTINENCE [None]
  - INSOMNIA [None]
  - MEDICATION ERROR [None]
